FAERS Safety Report 23186651 (Version 1)
Quarter: 2023Q4

REPORT INFORMATION
  Report Type: Spontaneous
  Country: US (occurrence: US)
  Receive Date: 20231115
  Receipt Date: 20231115
  Transmission Date: 20240110
  Serious: No
  Sender: FDA-Public Use
  Company Number: US-SANOFI-01833227

PATIENT
  Sex: Female

DRUGS (1)
  1. DUPIXENT [Suspect]
     Active Substance: DUPILUMAB
     Indication: Nasal polyps
     Dosage: UNK, TREATMENT DURATION:10 WEEKS
     Dates: start: 2023

REACTIONS (4)
  - Injection site urticaria [Unknown]
  - Injection site warmth [Unknown]
  - COVID-19 [Unknown]
  - Injection site induration [Unknown]

NARRATIVE: CASE EVENT DATE: 20231020
